FAERS Safety Report 9085281 (Version 1)
Quarter: 2013Q1

REPORT INFORMATION
  Report Type: Spontaneous
  Country: BR (occurrence: BR)
  Receive Date: 20130130
  Receipt Date: 20130130
  Transmission Date: 20140127
  Serious: Yes (Death, Other)
  Sender: FDA-Public Use
  Company Number: PHHY2013BR008376

PATIENT
  Sex: Male
  Weight: 95 kg

DRUGS (2)
  1. DIOVAN HCT [Suspect]
     Indication: BLOOD PRESSURE
     Dosage: 1 DF (160 MG VALS AND 12.5 MG HYDRO), PER DAY
  2. PROPANOLOL [Concomitant]
     Indication: VARICOSE VEIN
     Dosage: 40 MG, QD
     Route: 048
     Dates: start: 2007

REACTIONS (1)
  - Hepatitis C [Fatal]
